FAERS Safety Report 4548793-7 (Version None)
Quarter: 2005Q1

REPORT INFORMATION
  Report Type: 
  Country: None (occurrence: None)
  Receive Date: 20050107
  Receipt Date: 20050107
  Transmission Date: 20050727
  Serious: Yes (Hospitalization)
  Sender: FDA-Public Use
  Company Number: None

PATIENT
  Age: 64 Year
  Sex: Male
  Weight: 80.7403 kg

DRUGS (2)
  1. WARFARIN SODIUM [Suspect]
     Indication: CARDIOMYOPATHY
     Dosage: 4 MG  Q DAY ORAL
     Route: 048
     Dates: start: 20040812, end: 20041227
  2. WARFARIN SODIUM [Suspect]
     Indication: PULMONARY EMBOLISM
     Dosage: 4 MG  Q DAY ORAL
     Route: 048
     Dates: start: 20040812, end: 20041227

REACTIONS (5)
  - CONSTIPATION [None]
  - DRUG TOXICITY [None]
  - GASTROINTESTINAL HAEMORRHAGE [None]
  - NAUSEA [None]
  - VOMITING [None]
